FAERS Safety Report 23159495 (Version 1)
Quarter: 2023Q4

REPORT INFORMATION
  Report Type: Spontaneous
  Country: US (occurrence: None)
  Receive Date: 20231107
  Receipt Date: 20231107
  Transmission Date: 20240110
  Serious: Yes (Other)
  Sender: FDA-Public Use
  Company Number: None

PATIENT
  Age: 34 Year
  Sex: Male
  Weight: 76.5 kg

DRUGS (3)
  1. HUMIRA [Suspect]
     Active Substance: ADALIMUMAB
     Indication: Spondylitis
  2. ALBUTEROL [Concomitant]
     Active Substance: ALBUTEROL
  3. SUMATRIPTAN [Concomitant]
     Active Substance: SUMATRIPTAN

REACTIONS (4)
  - Rash [None]
  - Haematochezia [None]
  - Lipoma [None]
  - Pain [None]

NARRATIVE: CASE EVENT DATE: 20220301
